FAERS Safety Report 10460271 (Version 4)
Quarter: 2014Q4

REPORT INFORMATION
  Report Type: Spontaneous
  Country: US (occurrence: US)
  Receive Date: 20140917
  Receipt Date: 20141028
  Transmission Date: 20150528
  Serious: Yes (Other)
  Sender: FDA-Public Use
  Company Number: US-PFIZER INC-2014255284

PATIENT
  Age: 87 Year
  Sex: Male
  Weight: 104.31 kg

DRUGS (4)
  1. LYRICA [Suspect]
     Active Substance: PREGABALIN
     Dosage: 50 MG, 1X/DAY
     Route: 048
     Dates: start: 20140911
  2. LYRICA [Suspect]
     Active Substance: PREGABALIN
     Dosage: 50 MG, 2X/DAY
     Route: 048
     Dates: start: 20140910, end: 20140910
  3. LYRICA [Suspect]
     Active Substance: PREGABALIN
     Indication: NERVE COMPRESSION
     Dosage: 50 MG, 1X/DAY
     Route: 048
     Dates: start: 20140909, end: 20140909
  4. AMLODIPINE [Concomitant]
     Active Substance: AMLODIPINE BESYLATE
     Indication: HYPERTENSION
     Dosage: UNK

REACTIONS (7)
  - Somnolence [Unknown]
  - Circulatory collapse [Unknown]
  - Muscular weakness [Recovering/Resolving]
  - Therapeutic response unexpected [Unknown]
  - Pain [Unknown]
  - Gait disturbance [Unknown]
  - Pre-existing condition improved [Unknown]
